FAERS Safety Report 25371594 (Version 2)
Quarter: 2025Q2

REPORT INFORMATION
  Report Type: Spontaneous
  Country: US (occurrence: US)
  Receive Date: 20250529
  Receipt Date: 20250627
  Transmission Date: 20250716
  Serious: No
  Sender: BIOGEN
  Company Number: US-BIOGEN-2025BI01312385

PATIENT
  Sex: Female

DRUGS (6)
  1. TYSABRI [Suspect]
     Active Substance: NATALIZUMAB
     Indication: Multiple sclerosis
     Route: 050
  2. GABAPENTIN [Concomitant]
     Active Substance: GABAPENTIN
     Route: 050
  3. LUNESTA [Concomitant]
     Active Substance: ESZOPICLONE
     Route: 050
  4. ACTONEL [Concomitant]
     Active Substance: RISEDRONATE SODIUM
     Route: 050
  5. AMLODIPINE [Concomitant]
     Active Substance: AMLODIPINE BESYLATE
     Route: 050
  6. DALFAMPRIDINE [Concomitant]
     Active Substance: DALFAMPRIDINE
     Route: 050

REACTIONS (1)
  - Hypersensitivity [Unknown]
